FAERS Safety Report 8862004 (Version 1)
Quarter: 2012Q4

REPORT INFORMATION
  Report Type: 
  Country: US (occurrence: US)
  Receive Date: 20121025
  Receipt Date: 20121025
  Transmission Date: 20130627
  Serious: No
  Sender: FDA-Public Use
  Company Number: US-PFIZER INC-2012264109

PATIENT
  Age: 81 Year
  Sex: Male

DRUGS (2)
  1. GABAPENTIN [Suspect]
     Indication: AUTONOMIC NEUROPATHY
     Dosage: 900 mg per day
  2. GABAPENTIN [Suspect]
     Dosage: 2 tablets of 50 mg in morning as well as in afternoon and 4 tablets of 50 mg at night
     Dates: start: 201201

REACTIONS (2)
  - Off label use [Unknown]
  - Constipation [Unknown]
